FAERS Safety Report 5026234-3 (Version None)
Quarter: 2006Q2

REPORT INFORMATION
  Report Type: 
  Country: None (occurrence: None)
  Receive Date: 20060608
  Receipt Date: 20060601
  Transmission Date: 20061013
  Serious: Yes (Other)
  Sender: FDA-Public Use
  Company Number: 2006056779

PATIENT
  Age: 63 Year
  Sex: Female

DRUGS (3)
  1. EPELIN KAPSEALS (PHENYTOIN SODIUM) [Suspect]
     Indication: CONVULSION
     Dosage: 200MG OR 300 MG (100 MG, 1 IN 1 D), ORAL
     Route: 048
  2. HIDANTAL (PHENYTOIN) [Suspect]
     Indication: CONVULSION
     Dosage: 2 OR 3 TABLETS (100 MG, DAILY), ORAL
     Route: 048
     Dates: start: 20060201
  3. GARDENALE (PHENOBARBITAL SODIUM) [Concomitant]

REACTIONS (3)
  - EPILEPSY [None]
  - FEELING ABNORMAL [None]
  - MALAISE [None]
